FAERS Safety Report 12156161 (Version 2)
Quarter: 2016Q1

REPORT INFORMATION
  Report Type: Spontaneous
  Country: JP (occurrence: JP)
  Receive Date: 20160307
  Receipt Date: 20160322
  Transmission Date: 20160526
  Serious: Yes (Hospitalization, Other)
  Sender: FDA-Public Use
  Company Number: JP-ELI_LILLY_AND_COMPANY-JP201602009213

PATIENT
  Age: 65 Year
  Sex: Female

DRUGS (1)
  1. CYMBALTA [Suspect]
     Active Substance: DULOXETINE HYDROCHLORIDE
     Indication: SYRINGOMYELIA
     Dosage: 20 MG, QD
     Route: 048
     Dates: start: 201601

REACTIONS (7)
  - Decreased appetite [Unknown]
  - Inappropriate antidiuretic hormone secretion [Not Recovered/Not Resolved]
  - Pyrexia [Unknown]
  - Gastric cancer [Not Recovered/Not Resolved]
  - Vomiting [Unknown]
  - Blood sodium decreased [Recovering/Resolving]
  - Off label use [Not Recovered/Not Resolved]

NARRATIVE: CASE EVENT DATE: 201601
